FAERS Safety Report 20595562 (Version 5)
Quarter: 2023Q1

REPORT INFORMATION
  Report Type: Report from Study
  Country: US (occurrence: US)
  Receive Date: 20220315
  Receipt Date: 20230102
  Transmission Date: 20230418
  Serious: Yes (Hospitalization, Other)
  Sender: FDA-Public Use
  Company Number: US-TAKEDA-2022TUS015741

PATIENT
  Age: 66 Year
  Sex: Female

DRUGS (2)
  1. ECALLANTIDE [Suspect]
     Active Substance: ECALLANTIDE
     Indication: Product used for unknown indication
     Dosage: 3 DOSAGE FORM
     Route: 058
     Dates: start: 20220305
  2. ECALLANTIDE [Suspect]
     Active Substance: ECALLANTIDE
     Dosage: 3 DOSAGE FORM
     Route: 058

REACTIONS (2)
  - Splenic marginal zone lymphoma [Unknown]
  - Gastroenteritis viral [Unknown]

NARRATIVE: CASE EVENT DATE: 20220305
